FAERS Safety Report 8488957-3 (Version None)
Quarter: 2012Q3

REPORT INFORMATION
  Report Type: 
  Country: None (occurrence: None)
  Receive Date: 20120705
  Receipt Date: 20120702
  Transmission Date: 20120928
  Serious: No
  Sender: FDA-Public Use
  Company Number: US-PFIZER INC-2012159364

PATIENT
  Sex: Male

DRUGS (1)
  1. SUTENT [Suspect]
     Indication: RENAL CANCER
     Dosage: 50 MG DAILY, 4 WKS ON, 2 WKS OFF
     Dates: start: 20120411, end: 20120517

REACTIONS (2)
  - MUCOSAL INFLAMMATION [None]
  - PHARYNGITIS [None]
